FAERS Safety Report 18128227 (Version 1)
Quarter: 2020Q3

REPORT INFORMATION
  Report Type: Spontaneous
  Country: TR (occurrence: TR)
  Receive Date: 20200810
  Receipt Date: 20200810
  Transmission Date: 20201103
  Serious: Yes (Life-Threatening, Hospitalization)
  Sender: FDA-Public Use
  Company Number: TR-PFIZER INC-2020300893

PATIENT
  Age: 31 Year
  Sex: Female

DRUGS (1)
  1. METHYLPREDNISOLONE ACETATE. [Suspect]
     Active Substance: METHYLPREDNISOLONE ACETATE
     Indication: RHEUMATOID ARTHRITIS
     Dosage: 1 G, DAILY FOR 3 DAYS (INFUSION)
     Route: 042

REACTIONS (3)
  - Product use issue [Unknown]
  - Acute abdomen [Recovered/Resolved]
  - Off label use [Unknown]
